FAERS Safety Report 5193904-6 (Version None)
Quarter: 2006Q4

REPORT INFORMATION
  Report Type: 
  Country: None (occurrence: None)
  Receive Date: 20061228
  Receipt Date: 20060523
  Transmission Date: 20070319
  Serious: No
  Sender: FDA-Public Use
  Company Number: US-GLAXOSMITHKLINE-A0607518A

PATIENT
  Age: 45 Year
  Sex: Male

DRUGS (2)
  1. FLONASE [Suspect]
     Indication: APPLICATION SITE RASH
     Route: 065
  2. FENTANYL [Suspect]
     Indication: DRUG USE FOR UNKNOWN INDICATION
     Route: 065

REACTIONS (3)
  - APPLICATION SITE RASH [None]
  - APPLICATION SITE VESICLES [None]
  - CONDITION AGGRAVATED [None]
